FAERS Safety Report 14497577 (Version 1)
Quarter: 2018Q1

REPORT INFORMATION
  Report Type: Spontaneous
  Country: US (occurrence: US)
  Receive Date: 20180207
  Receipt Date: 20180207
  Transmission Date: 20180509
  Serious: Yes (Congenital Anomaly)
  Sender: FDA-Public Use
  Company Number: US-AMGEN-USASP2018015298

PATIENT
  Age: 0 Day
  Sex: Male

DRUGS (3)
  1. ENBREL [Suspect]
     Active Substance: ETANERCEPT
     Indication: EXPOSURE DURING PREGNANCY
     Dosage: 50 MG, QWK
     Route: 064
     Dates: end: 2014
  2. TYLENOL [Concomitant]
     Active Substance: ACETAMINOPHEN
     Indication: EXPOSURE DURING PREGNANCY
     Dosage: UNK
     Route: 064
  3. MOTRIN [Concomitant]
     Active Substance: IBUPROFEN
     Indication: EXPOSURE DURING PREGNANCY
     Dosage: UNK
     Route: 064

REACTIONS (4)
  - Influenza [Unknown]
  - Lung disorder [Not Recovered/Not Resolved]
  - Decreased immune responsiveness [Unknown]
  - Premature baby [Unknown]

NARRATIVE: CASE EVENT DATE: 20140606
